FAERS Safety Report 19695021 (Version 2)
Quarter: 2021Q4

REPORT INFORMATION
  Report Type: Spontaneous
  Country: US (occurrence: US)
  Receive Date: 20210813
  Receipt Date: 20211001
  Transmission Date: 20220303
  Serious: No
  Sender: FDA-Public Use
  Company Number: US-PFIZER INC-2019345156

PATIENT
  Age: 33 Year
  Sex: Female
  Weight: 145.1 kg

DRUGS (3)
  1. GENOTROPIN [Suspect]
     Active Substance: SOMATROPIN
     Indication: Growth hormone deficiency
     Dosage: 0.6 MG, DAILY
  2. WARFARIN [Concomitant]
     Active Substance: WARFARIN
     Indication: Factor V Leiden mutation
     Dosage: 2 MG, DAILY
  3. TAVALISSE [Concomitant]
     Active Substance: FOSTAMATINIB
     Indication: Platelet disorder
     Dosage: 150 MG, 2X/DAY
     Route: 048

REACTIONS (1)
  - Therapeutic product effect incomplete [Unknown]
